FAERS Safety Report 8616117-1 (Version None)
Quarter: 2012Q3

REPORT INFORMATION
  Report Type: 
  Country: None (occurrence: None)
  Receive Date: 20120823
  Receipt Date: 20120731
  Transmission Date: 20120928
  Serious: No
  Sender: FDA-Public Use
  Company Number: US-009507513-1208USA000414

PATIENT

DRUGS (2)
  1. TRUSOPT [Suspect]
     Indication: INTRAOCULAR PRESSURE INCREASED
     Dosage: 2 GTT, BID
     Route: 047
     Dates: start: 20111201, end: 20120730
  2. LUMIGAN [Concomitant]

REACTIONS (2)
  - EYE IRRITATION [None]
  - EYELID MARGIN CRUSTING [None]
